FAERS Safety Report 4785821-8 (Version None)
Quarter: 2005Q3

REPORT INFORMATION
  Report Type: 
  Country: None (occurrence: None)
  Receive Date: 20050929
  Receipt Date: 20050920
  Transmission Date: 20060218
  Serious: Yes (Other)
  Sender: FDA-Public Use
  Company Number: 2005130925

PATIENT
  Age: 75 Year
  Sex: Female

DRUGS (5)
  1. GABAPENTIN [Suspect]
     Indication: NEUROPATHY PERIPHERAL
     Dosage: 300 MG (100 MG, 3 IN 1 D)
  2. TOPROL XL (METOPROLOL SUCCI ATE) [Concomitant]
  3. LASIX [Concomitant]
  4. LEXAPRO [Concomitant]
  5. K-DUR 10 [Concomitant]

REACTIONS (2)
  - BREAST CANCER [None]
  - COELIAC DISEASE [None]
